FAERS Safety Report 8954119 (Version 2)
Quarter: 2013Q1

REPORT INFORMATION
  Report Type: Report from Study
  Country: US (occurrence: US)
  Receive Date: 20121207
  Receipt Date: 20130128
  Transmission Date: 20140127
  Serious: Yes (Life-Threatening, Hospitalization, Other)
  Sender: FDA-Public Use
  Company Number: US-GENZYME-CLOF-1002331

PATIENT
  Age: 9 Year
  Sex: Male
  Weight: 34.7 kg

DRUGS (52)
  1. CLOLAR [Suspect]
     Indication: LYMPHOCYTIC LEUKAEMIA
     Dosage: 34 MG, QD
     Route: 042
     Dates: start: 20120529, end: 20120602
  2. CLOLAR [Suspect]
     Dosage: 34 MG, QD (CONSOLIDATION PART-2; DAY 29-57)
     Route: 042
     Dates: start: 20120705, end: 20120709
  3. CYCLOPHOSPHAMIDE [Suspect]
     Indication: LYMPHOCYTIC LEUKAEMIA
     Dosage: 1220 MG, UNK (CONSOLIDATION PART 1)
     Route: 042
     Dates: start: 20120529
  4. CYCLOPHOSPHAMIDE [Suspect]
     Dosage: 497 MG, UNK (CONSOLODATION PART-2; DAY 29-57)
     Route: 042
     Dates: start: 20120705, end: 20120709
  5. ETOPOSIDE [Suspect]
     Indication: LYMPHOCYTIC LEUKAEMIA
     Dosage: 113 MG, UNK (CONSOLODATION PART-2; DAY 29-57)
     Route: 042
     Dates: start: 20120705, end: 20120709
  6. METHOTREXATE [Suspect]
     Indication: LYMPHOCYTIC LEUKAEMIA
     Dosage: 15 MG, UNK (INDUCTION THERAPY)
     Route: 037
     Dates: start: 20120426
  7. METHOTREXATE [Suspect]
     Dosage: 15 MG, UNK (INDUCTION THERAPY)
     Route: 037
     Dates: start: 20120517
  8. METHOTREXATE [Suspect]
     Dosage: 15 MG, UNK (CONSOLIDATION PART 1)
     Route: 037
     Dates: start: 20120611
  9. METHOTREXATE [Suspect]
     Dosage: 15 MG, UNK (CONSOLIDATION PART 1)
     Route: 037
     Dates: start: 20120529
  10. METHOTREXATE [Suspect]
     Dosage: 15 MG, UNK (CONSOLIDATION PART 1)
     Route: 037
     Dates: start: 20120604
  11. METHOTREXATE [Suspect]
     Dosage: 15 MG, UNK (CONSOLIDATION PART 1)
     Route: 037
     Dates: start: 20120618
  12. METHOTREXATE [Suspect]
     Dosage: 5850 MG (HIGH DOSE), UNK INTERIM MAINTENANCE THERAPY)
     Route: 042
     Dates: start: 20121021
  13. METHOTREXATE [Suspect]
     Dosage: 6000 MG, (HIGH DOSE), UNK INTERIM MAINTENANCE THERAPY)
     Route: 042
     Dates: start: 20121103
  14. METHOTREXATE [Suspect]
     Dosage: 6100 MG (HIGH DOSE), UNK INTERIM MAINTENANCE THERAPY)
     Route: 042
     Dates: start: 20121226
  15. METHOTREXATE [Suspect]
     Dosage: 15 MG, UNK, (INTERIM MAINTENANCE THERAPY)
     Route: 037
     Dates: start: 20121021
  16. METHOTREXATE [Suspect]
     Dosage: 15 MG, UNK (INTERIM MAINTENANCE THERAPY)
     Route: 037
     Dates: start: 20121226
  17. VINCRISTINE SULFATE [Suspect]
     Indication: LYMPHOCYTIC LEUKAEMIA
     Dosage: 1.6 MG, UNK (INDUCTION THERAPY)
     Route: 042
     Dates: start: 20120419
  18. VINCRISTINE SULFATE [Suspect]
     Dosage: 1.6 MG, UNK (INDUCTION THERAPY)
     Route: 042
     Dates: start: 20120426
  19. VINCRISTINE SULFATE [Suspect]
     Dosage: 1.7 MG, UNK(INDUCTION THERAPY)
     Route: 042
     Dates: start: 20120510
  20. VINCRISTINE SULFATE [Suspect]
     Dosage: 1.8 MG, UNK (CONSOLIDATION PART 1)
     Route: 042
     Dates: start: 20120611
  21. VINCRISTINE SULFATE [Suspect]
     Dosage: 1.7 MG, UNK (CONSOLIDATION PART 1)
     Route: 042
     Dates: start: 20120618
  22. VINCRISTINE SULFATE [Suspect]
     Dosage: 1.7 MG, UNK (CONSOLODATION PART-2; DAY 29-57)
     Route: 042
     Dates: start: 20120723
  23. VINCRISTINE SULFATE [Suspect]
     Dosage: 1.7 MG, UNK (CONSOLODATION PART-2; DAY 29-57)
     Route: 042
     Dates: start: 20120730
  24. VINCRISTINE SULFATE [Suspect]
     Dosage: 1.8 MG, UNK (INTERIM MAINTENANCE THERAPY)
     Route: 042
     Dates: start: 20121021
  25. VINCRISTINE SULFATE [Suspect]
     Dosage: 1.8 MG, UNK, INTERIM MAINTENANCE THERAPY)
     Route: 042
     Dates: start: 20121103
  26. VINCRISTINE SULFATE [Suspect]
     Dosage: 1.8 MG, UNK INTERIM MAINTENANCE THERAPY)
     Route: 042
     Dates: start: 20121226
  27. PEGASPARGASE [Suspect]
     Indication: LYMPHOCYTIC LEUKAEMIA
     Dosage: 2750 IU, UNK (INDUCTION THERAPY)
     Route: 042
     Dates: start: 20120422
  28. PEGASPARGASE [Suspect]
     Dosage: 2925 IU, UNK (CONSOLIDATION PART 1)
     Route: 042
     Dates: start: 20120611
  29. PEGASPARGASE [Suspect]
     Dosage: 2750 IU, UNK (CONSOLIDATION PART 2)
     Route: 042
     Dates: start: 20120723
  30. MERCAPTOPURINE [Suspect]
     Indication: LYMPHOCYTIC LEUKAEMIA
     Dosage: 75 MG, UNK (CONSOLIDATION PART 1)
     Route: 048
     Dates: start: 20120529, end: 20120610
  31. MERCAPTOPURINE [Suspect]
     Dosage: 25 MG MON-FRI AND 37.5 MG SAT-SUN MG (INTERIM MAINTENANCE THERAPY)
     Route: 048
     Dates: start: 20121021
  32. LEUCOVORIN [Suspect]
     Indication: LYMPHOCYTIC LEUKAEMIA
     Dosage: 18 MG, UNK (INTERIM MAINTENANCE THERAPY)
     Route: 065
  33. LEUCOVORIN [Suspect]
     Dosage: 18 MG, UNK (INTERIM MAINTENANCE THERAPY)
     Route: 065
     Dates: start: 20121205
  34. LEUCOVORIN [Suspect]
     Dosage: 18 MG, UNK (INTERIM MAINTENANCE THERAPY)
     Route: 065
     Dates: start: 20121228
  35. ARA-C [Suspect]
     Indication: LYMPHOCYTIC LEUKAEMIA
     Dosage: 70 MG, UNK ( INDUCTION THERAPY)
     Route: 037
     Dates: start: 20120417
  36. ARA-C [Suspect]
     Dosage: 90 MG, UNK (CONSOLIDATION PART 1)
     Route: 042
     Dates: start: 20120529, end: 20120601
  37. ARA-C [Suspect]
     Dosage: 90 MG, UNK (CONSOLIDATION PART 1)
     Route: 042
     Dates: start: 20120604, end: 20120607
  38. DEXAMETHASONE [Suspect]
     Indication: LYMPHOCYTIC LEUKAEMIA
     Dosage: 3.3 MG, BID (INDUCTION THERAPY)
     Route: 048
     Dates: start: 20120419, end: 20120516
  39. TOTAL PARENTERAL NUTRITION [Concomitant]
     Indication: HYPOPHAGIA
     Dosage: UNK
     Route: 065
     Dates: start: 201207, end: 20120924
  40. TOTAL PARENTERAL NUTRITION [Concomitant]
     Indication: DIARRHOEA
     Dosage: UNK
     Route: 065
     Dates: start: 20121002
  41. ALBUMIN [Concomitant]
     Indication: PRODUCT USED FOR UNKNOWN INDICATION
     Dosage: UNK
     Route: 065
     Dates: start: 2012
  42. LASIX [Concomitant]
     Indication: PRODUCT USED FOR UNKNOWN INDICATION
     Dosage: UNK
     Route: 065
     Dates: start: 2012
  43. KYTRIL [Concomitant]
     Indication: PROPHYLAXIS OF NAUSEA AND VOMITING
     Dosage: UNK
     Route: 065
     Dates: start: 2012
  44. KYTRIL [Concomitant]
     Indication: PROPHYLAXIS AGAINST DIARRHOEA
  45. FAMOTIDINE [Concomitant]
     Indication: GASTRITIS PROPHYLAXIS
     Dosage: 20 MG, BID
     Route: 065
     Dates: start: 2012
  46. BACTRIM [Concomitant]
     Indication: INFECTION PROPHYLAXIS
     Dosage: UNK
     Route: 065
     Dates: start: 2012
  47. MICAFUNGIN [Concomitant]
     Indication: PRODUCT USED FOR UNKNOWN INDICATION
     Dosage: UNK
     Route: 065
     Dates: start: 2012
  48. PHENERGAN [Concomitant]
     Indication: PRODUCT USED FOR UNKNOWN INDICATION
     Dosage: UNK
     Route: 065
     Dates: start: 2012
  49. BENADRYL [Concomitant]
     Indication: PRODUCT USED FOR UNKNOWN INDICATION
     Dosage: UNK
     Route: 065
     Dates: start: 2012
  50. MEROPENEM [Concomitant]
     Indication: PRODUCT USED FOR UNKNOWN INDICATION
     Dosage: UNK
     Route: 065
     Dates: start: 2012
  51. FLUCONAZOLE [Concomitant]
     Indication: PRODUCT USED FOR UNKNOWN INDICATION
     Dosage: UNK
     Route: 065
     Dates: start: 2012
  52. VANCOMYCIN [Concomitant]
     Indication: PRODUCT USED FOR UNKNOWN INDICATION
     Dosage: UNK
     Route: 065
     Dates: start: 2012

REACTIONS (34)
  - Anaemia [Recovered/Resolved]
  - Neutropenia [Recovered/Resolved]
  - Klebsiella bacteraemia [Recovered/Resolved]
  - Herpes zoster [Recovered/Resolved]
  - Infective myositis [Not Recovered/Not Resolved]
  - Thrombocytopenia [Not Recovered/Not Resolved]
  - Cellulitis [Not Recovered/Not Resolved]
  - Insomnia [Not Recovered/Not Resolved]
  - Lipase increased [Recovered/Resolved]
  - Decreased appetite [Recovered/Resolved]
  - Abdominal pain [Recovered/Resolved]
  - Suicidal ideation [Not Recovered/Not Resolved]
  - Personality change [Not Recovered/Not Resolved]
  - Cardiomegaly [Recovered/Resolved]
  - Ventricular tachycardia [Recovered/Resolved]
  - Ventricular extrasystoles [Recovered/Resolved]
  - Hallucination [Recovered/Resolved]
  - Chest pain [Recovered/Resolved]
  - Testicular pain [Recovered/Resolved]
  - Blood pressure increased [Not Recovered/Not Resolved]
  - Hyperphosphataemia [Recovered/Resolved]
  - Electrocardiogram QT prolonged [Recovered/Resolved]
  - Clostridium difficile colitis [Recovered/Resolved]
  - Febrile neutropenia [Not Recovered/Not Resolved]
  - Staphylococcal bacteraemia [Recovered/Resolved]
  - Brain oedema [Unknown]
  - Catheter site erythema [Recovered/Resolved]
  - Catheter site erosion [Recovered/Resolved]
  - Fall [Recovered/Resolved]
  - Constipation [Not Recovered/Not Resolved]
  - Headache [Recovered/Resolved]
  - Klebsiella infection [Recovered/Resolved]
  - Hypotension [Recovered/Resolved]
  - Abdominal pain [Recovered/Resolved]
